FAERS Safety Report 6214281-5 (Version None)
Quarter: 2009Q2

REPORT INFORMATION
  Report Type: 
  Country: None (occurrence: None)
  Receive Date: 20090604
  Receipt Date: 20071128
  Transmission Date: 20091009
  Serious: Yes (Other)
  Sender: FDA-Public Use
  Company Number: US-ASTRAZENECA-2006UW21287

PATIENT
  Age: 14976 Day
  Sex: Female
  Weight: 92.5 kg

DRUGS (31)
  1. SEROQUEL [Suspect]
     Indication: SCHIZOPHRENIA
     Dosage: 25 MG-400 MG
     Route: 048
     Dates: start: 20031111
  2. SEROQUEL [Suspect]
     Indication: BIPOLAR DISORDER
     Dosage: 25 MG-400 MG
     Route: 048
     Dates: start: 20031111
  3. SEROQUEL [Suspect]
     Indication: DEPRESSION
     Dosage: 25 MG-400 MG
     Route: 048
     Dates: start: 20031111
  4. SEROQUEL [Suspect]
     Indication: SLEEP DISORDER
     Dosage: 25 MG-400 MG
     Route: 048
     Dates: start: 20031111
  5. SEROQUEL [Suspect]
     Dosage: 1/2 TAB QAM, 1 1/2 TABS QHS
     Route: 048
     Dates: start: 20030101, end: 20060419
  6. SEROQUEL [Suspect]
     Dosage: 1/2 TAB QAM, 1 1/2 TABS QHS
     Route: 048
     Dates: start: 20030101, end: 20060419
  7. SEROQUEL [Suspect]
     Dosage: 1/2 TAB QAM, 1 1/2 TABS QHS
     Route: 048
     Dates: start: 20030101, end: 20060419
  8. SEROQUEL [Suspect]
     Dosage: 1/2 TAB QAM, 1 1/2 TABS QHS
     Route: 048
     Dates: start: 20030101, end: 20060419
  9. GEODON [Concomitant]
  10. LEXAPRO [Concomitant]
  11. LEXAPRO [Concomitant]
     Dosage: 10-20 MG
     Dates: start: 20040412
  12. WELLBUTRIN [Concomitant]
  13. HYDROCODONE BITARTRATE + ACETAMINOPHEN [Concomitant]
     Dates: start: 20031007
  14. FLUVOXAMINE MALEATE [Concomitant]
     Dates: start: 20031124
  15. PREVACID [Concomitant]
     Dates: start: 20031125
  16. REMERON [Concomitant]
     Dates: start: 20031211
  17. ALBUTEROL [Concomitant]
     Dosage: TWO PUFFS A DAY
     Dates: start: 20031211
  18. FLOVENT [Concomitant]
     Dates: start: 20031211
  19. ATROVENT [Concomitant]
     Dates: start: 20040108
  20. PROTONIX [Concomitant]
     Dates: start: 20040330
  21. SINGULAIR [Concomitant]
     Dates: start: 20040830
  22. PREDNISONE [Concomitant]
     Dates: start: 20040914
  23. TOPAMAX [Concomitant]
     Dosage: 25 MG IN MORNING AND 50 MG IN EVENING
     Dates: start: 20041011
  24. TRAZODONE HCL [Concomitant]
     Dates: start: 20041102
  25. THEOPHYLLINE [Concomitant]
     Dates: start: 20050209
  26. WELLBUTRIN XL [Concomitant]
     Dates: start: 20050427
  27. CYMBALTA [Concomitant]
     Dates: start: 20050808
  28. LISINOPRIL [Concomitant]
     Dates: start: 20060222
  29. SPIRIVA [Concomitant]
     Dates: start: 20060419
  30. ROZEREM [Concomitant]
     Dates: start: 20060426
  31. ADVAIR DISKUS 500/50 [Concomitant]
     Dates: start: 20060322

REACTIONS (10)
  - ACUTE RESPIRATORY FAILURE [None]
  - ASTHMA [None]
  - CHRONIC OBSTRUCTIVE PULMONARY DISEASE [None]
  - COLLAPSE OF LUNG [None]
  - DIABETES MELLITUS [None]
  - DIABETES MELLITUS INADEQUATE CONTROL [None]
  - EMPHYSEMA [None]
  - HYPOXIA [None]
  - INFECTIVE EXACERBATION OF CHRONIC OBSTRUCTIVE AIRWAYS DISEASE [None]
  - RESPIRATORY ARREST [None]
